FAERS Safety Report 9469895 (Version 1)
Quarter: 2013Q3

REPORT INFORMATION
  Report Type: Spontaneous
  Country: JP (occurrence: JP)
  Receive Date: 20130822
  Receipt Date: 20130822
  Transmission Date: 20140515
  Serious: Yes (Death)
  Sender: FDA-Public Use
  Company Number: JP-PURDUE-GBR-2013-0015375

PATIENT
  Age: 80 Year
  Sex: 0

DRUGS (2)
  1. OXYCODONE HYDROCHLORIDE [Suspect]
     Indication: CANCER PAIN
     Dosage: 15 MG, DAILY
     Route: 042
     Dates: start: 20130730, end: 20130731
  2. MORPHINE                           /00036303/ [Concomitant]
     Indication: DYSPNOEA
     Dosage: UNK
     Dates: end: 20130730

REACTIONS (1)
  - Laryngeal cancer [Fatal]
